FAERS Safety Report 5979209-1 (Version None)
Quarter: 2008Q4

REPORT INFORMATION
  Report Type: 
  Country: None (occurrence: None)
  Receive Date: 20081204
  Receipt Date: 20080512
  Transmission Date: 20090506
  Serious: No
  Sender: FDA-Public Use
  Company Number: US-ABBOTT-08P-163-0451688-00

PATIENT
  Sex: Female
  Weight: 103.06 kg

DRUGS (2)
  1. TRICOR [Suspect]
     Indication: DRUG USE FOR UNKNOWN INDICATION
     Dates: start: 20080414
  2. TRICOR [Suspect]
     Indication: LABORATORY TEST

REACTIONS (3)
  - BREAST TENDERNESS [None]
  - FUNGAL INFECTION [None]
  - MYALGIA [None]
